FAERS Safety Report 6652478-0 (Version None)
Quarter: 2010Q1

REPORT INFORMATION
  Report Type: 
  Country: None (occurrence: None)
  Receive Date: 20100323
  Receipt Date: 20100309
  Transmission Date: 20100710
  Serious: No
  Sender: FDA-Public Use
  Company Number: 009064

PATIENT
  Age: 35 Year
  Sex: Male

DRUGS (1)
  1. CILOSTAZOL [Suspect]
     Dosage: ORAL
     Route: 048

REACTIONS (11)
  - ACALCULIA [None]
  - AGNOSIA [None]
  - APHASIA [None]
  - CEREBRAL HYPERPERFUSION SYNDROME [None]
  - CEREBRAL INFARCTION [None]
  - DYSLALIA [None]
  - HEADACHE [None]
  - HYPOAESTHESIA [None]
  - MUSCLE SWELLING [None]
  - POST PROCEDURAL HAEMATOMA [None]
  - SCOTOMA [None]
